FAERS Safety Report 15984604 (Version 1)
Quarter: 2019Q1

REPORT INFORMATION
  Report Type: Report from Study
  Country: None (occurrence: IL)
  Receive Date: 20190220
  Receipt Date: 20190220
  Transmission Date: 20190418
  Serious: Yes (Disabling)
  Sender: FDA-Public Use
  Company Number: IL-ABBVIE-19S-082-2670603-00

PATIENT
  Age: 66 Year
  Sex: Male

DRUGS (1)
  1. DUODOPA [Suspect]
     Active Substance: CARBIDOPA\LEVODOPA
     Indication: PARKINSON^S DISEASE
     Dosage: MD 6ML, CD 3ML/HOUR, ED 1.5ML
     Route: 050
     Dates: start: 20170220

REACTIONS (4)
  - Weight decreased [Unknown]
  - Gait inability [Unknown]
  - Wheelchair user [Unknown]
  - Dyskinesia [Unknown]

NARRATIVE: CASE EVENT DATE: 201812
